FAERS Safety Report 24643773 (Version 2)
Quarter: 2024Q4

REPORT INFORMATION
  Report Type: Spontaneous
  Country: US (occurrence: US)
  Receive Date: 20241120
  Receipt Date: 20241125
  Transmission Date: 20250115
  Serious: No
  Sender: PFIZER
  Company Number: US-BRISTOL-MYERS SQUIBB COMPANY-2024-169562

PATIENT
  Age: 61 Year
  Sex: Female

DRUGS (2)
  1. ELIQUIS [Suspect]
     Active Substance: APIXABAN
     Dosage: 2.5 MG, FREQ:0.5 DAY
  2. TUKYSA [Concomitant]
     Active Substance: TUCATINIB
     Indication: Thrombosis
     Dosage: 2 DF, FREQ: 0.5 DAY

REACTIONS (3)
  - Diarrhoea [Unknown]
  - Rash [Unknown]
  - Arthralgia [Unknown]
